FAERS Safety Report 18396751 (Version 2)
Quarter: 2020Q4

REPORT INFORMATION
  Report Type: Report from Study
  Country: US (occurrence: US)
  Receive Date: 20201019
  Receipt Date: 20201105
  Transmission Date: 20210114
  Serious: Yes (Other)
  Sender: FDA-Public Use
  Company Number: US-HORIZON-2020HZN00097

PATIENT
  Age: 51 Year
  Sex: Female

DRUGS (2)
  1. OZEMPICOZEMPICSEMAGLUTIDE [Concomitant]
  2. TEPEZZA [Suspect]
     Active Substance: TEPROTUMUMAB-TRBW
     Indication: ENDOCRINE OPHTHALMOPATHY
     Route: 050
     Dates: start: 20200806

REACTIONS (1)
  - Diabetes mellitus [Unknown]
